FAERS Safety Report 5427037-8 (Version None)
Quarter: 2007Q3

REPORT INFORMATION
  Report Type: 
  Country: None (occurrence: None)
  Receive Date: 20070824
  Receipt Date: 20070824
  Transmission Date: 20080115
  Serious: No
  Sender: FDA-Public Use
  Company Number: None

PATIENT
  Age: 33 Year
  Sex: Male

DRUGS (2)
  1. LAMOTRIGINE [Suspect]
     Indication: DEPRESSION
     Dosage: 25MG BID PO
     Route: 048
     Dates: start: 20070702, end: 20070712
  2. LAMOTRIGINE [Suspect]
     Indication: MOOD ALTERED
     Dosage: 25MG BID PO
     Route: 048
     Dates: start: 20070702, end: 20070712

REACTIONS (3)
  - ERYTHEMA MULTIFORME [None]
  - STEVENS-JOHNSON SYNDROME [None]
  - URTICARIA [None]
